FAERS Safety Report 17050090 (Version 1)
Quarter: 2019Q4

REPORT INFORMATION
  Report Type: Spontaneous
  Country: US (occurrence: US)
  Receive Date: 20191119
  Receipt Date: 20191119
  Transmission Date: 20200122
  Serious: Yes (Death, Hospitalization)
  Sender: FDA-Public Use
  Company Number: US-ACTELION-A-NJ2019-198093

PATIENT
  Sex: Male
  Weight: 97.51 kg

DRUGS (1)
  1. VELETRI [Suspect]
     Active Substance: EPOPROSTENOL
     Indication: PULMONARY ARTERIAL HYPERTENSION
     Dosage: 3.5 NG/KG, PER MIN
     Route: 042

REACTIONS (4)
  - Renal failure [Fatal]
  - Cardiac failure congestive [Fatal]
  - Pulmonary hypertension [Fatal]
  - Dialysis [Not Recovered/Not Resolved]
